FAERS Safety Report 16042535 (Version 1)
Quarter: 2019Q1

REPORT INFORMATION
  Report Type: Report from Study
  Country: JP (occurrence: JP)
  Receive Date: 20190306
  Receipt Date: 20190306
  Transmission Date: 20190418
  Serious: Yes (Life-Threatening)
  Sender: FDA-Public Use
  Company Number: JP-KYOWAKIRIN-2018AKK001520AA

PATIENT

DRUGS (20)
  1. CHLORPHENIRAMINE MALEATE. [Concomitant]
     Active Substance: CHLORPHENIRAMINE MALEATE
     Indication: PROPHYLAXIS
     Dosage: UNK UNK, 1X/WEEK
     Route: 048
     Dates: start: 20170608, end: 20170615
  2. BAKTAR [Concomitant]
     Active Substance: SULFAMETHOXAZOLE\TRIMETHOPRIM
     Indication: INFECTION PROPHYLAXIS
     Dosage: UNK
     Route: 048
     Dates: start: 20170208
  3. NAFTOPIDIL OD [Concomitant]
     Dosage: UNK
     Route: 048
  4. SODIUM CHLORIDE. [Concomitant]
     Active Substance: SODIUM CHLORIDE
     Dosage: UNK
     Route: 048
     Dates: end: 20170728
  5. FLUCONAZOLE. [Concomitant]
     Active Substance: FLUCONAZOLE
     Indication: INFECTION PROPHYLAXIS
     Dosage: UNK
     Route: 048
     Dates: start: 20170208
  6. YOKUKANSAN [Concomitant]
     Active Substance: HERBALS
     Dosage: UNK
     Route: 048
  7. FEXOFENADINE HYDROCHLORIDE. [Concomitant]
     Active Substance: FEXOFENADINE HYDROCHLORIDE
     Dosage: UNK
     Route: 048
  8. SEIBULE [Concomitant]
     Active Substance: MIGLITOL
     Dosage: UNK
     Route: 048
     Dates: end: 20171224
  9. PREDONINE [Suspect]
     Active Substance: PREDNISOLONE
     Dosage: 50 MG
     Route: 048
  10. SAXIZON [Concomitant]
     Active Substance: HYDROCORTISONE SODIUM SUCCINATE
     Indication: PROPHYLAXIS
     Dosage: 100 MG, 1X/WEEK
     Route: 065
     Dates: start: 20170608, end: 20170615
  11. LANSOPRAZOLE. [Concomitant]
     Active Substance: LANSOPRAZOLE
     Indication: PROPHYLAXIS
     Dosage: UNK
     Route: 048
  12. ROZEREM [Concomitant]
     Active Substance: RAMELTEON
     Dosage: UNK
     Route: 048
  13. MOGAMULIZUMAB [Suspect]
     Active Substance: MOGAMULIZUMAB
     Indication: PERIPHERAL T-CELL LYMPHOMA UNSPECIFIED
     Dosage: 1 MG/KG, 1X/WEEK
     Route: 041
     Dates: start: 20170608, end: 20170615
  14. REMERON [Concomitant]
     Active Substance: MIRTAZAPINE
     Dosage: UNK
     Route: 048
  15. PREDONINE [Suspect]
     Active Substance: PREDNISOLONE
     Dosage: 30 MG
     Route: 048
     Dates: start: 20170620
  16. SULPIRIDE [Concomitant]
     Active Substance: SULPIRIDE
     Indication: PROPHYLAXIS
     Dosage: UNK
     Route: 048
  17. ACETAMINOPHEN. [Concomitant]
     Active Substance: ACETAMINOPHEN
     Indication: PROPHYLAXIS
     Dosage: UNK UNK, 1X/WEEK
     Route: 048
     Dates: start: 20170608, end: 20170615
  18. PREDONINE [Suspect]
     Active Substance: PREDNISOLONE
     Dosage: 40 MG
     Route: 048
     Dates: start: 20170613
  19. MAGNESIUM OXIDE. [Concomitant]
     Active Substance: MAGNESIUM OXIDE
     Dosage: UNK
     Route: 048
  20. NOVORAPID [Concomitant]
     Active Substance: INSULIN ASPART
     Dosage: UNK
     Route: 065

REACTIONS (1)
  - Cytomegalovirus infection [Recovered/Resolved]

NARRATIVE: CASE EVENT DATE: 20170621
